FAERS Safety Report 4709137-0 (Version None)
Quarter: 2005Q3

REPORT INFORMATION
  Report Type: 
  Country: None (occurrence: None)
  Receive Date: 20050708
  Receipt Date: 20050623
  Transmission Date: 20060218
  Serious: Yes (Other)
  Sender: FDA-Public Use
  Company Number: US-JNJFOC-20050403325

PATIENT
  Sex: Male

DRUGS (3)
  1. TOPAMAX [Suspect]
     Route: 049
  2. LORTAB [Concomitant]
  3. LORTAB [Concomitant]

REACTIONS (2)
  - ANGLE CLOSURE GLAUCOMA [None]
  - BLINDNESS [None]
